APPROVED DRUG PRODUCT: ZONALON
Active Ingredient: DOXEPIN HYDROCHLORIDE
Strength: 5%
Dosage Form/Route: CREAM;TOPICAL
Application: N020126 | Product #001 | TE Code: AB
Applicant: MYLAN PHARMACEUTICALS INC
Approved: Apr 1, 1994 | RLD: Yes | RS: Yes | Type: RX